FAERS Safety Report 13694405 (Version 2)
Quarter: 2017Q3

REPORT INFORMATION
  Report Type: Report from Study
  Country: ES (occurrence: ES)
  Receive Date: 20170627
  Receipt Date: 20170707
  Transmission Date: 20171127
  Serious: Yes (Death, Hospitalization)
  Sender: FDA-Public Use
  Company Number: ES-PFIZER INC-2017221784

PATIENT
  Age: 48 Year
  Sex: Female
  Weight: 59 kg

DRUGS (11)
  1. PEMETREXED. [Suspect]
     Active Substance: PEMETREXED
     Indication: LUNG NEOPLASM MALIGNANT
     Dosage: 790 MG, UNK
     Route: 042
     Dates: start: 20170503, end: 20170503
  2. AVELUMAB [Suspect]
     Active Substance: AVELUMAB
     Indication: NON-SMALL CELL LUNG CANCER
     Dosage: 570 MG, ONCE EVERY 2 WEEKS
     Route: 042
     Dates: start: 20161230
  3. AVELUMAB [Suspect]
     Active Substance: AVELUMAB
     Dosage: 570 MG, ONCE EVERY 2 WEEKS
     Route: 042
  4. AVELUMAB [Suspect]
     Active Substance: AVELUMAB
     Dosage: 570 MG, ONCE EVERY 2 WEEKS
     Route: 042
  5. FOLIC ACID. [Concomitant]
     Active Substance: FOLIC ACID
     Indication: ANAEMIA PROPHYLAXIS
     Dosage: 5 MG, 1X/DAY
     Route: 048
  6. PARACETAMOL [Concomitant]
     Active Substance: ACETAMINOPHEN
     Indication: PAIN MANAGEMENT
     Dosage: 650 MG, AS NEEDED
     Route: 048
     Dates: start: 20170419, end: 20170510
  7. CARBOPLATIN. [Suspect]
     Active Substance: CARBOPLATIN
     Indication: LUNG NEOPLASM MALIGNANT
     Dosage: 440 MG, UNK
     Route: 042
     Dates: start: 20170503, end: 20170503
  8. AVELUMAB [Suspect]
     Active Substance: AVELUMAB
     Dosage: 610 MG, UNK
     Dates: end: 20170419
  9. CYANOCOBALAMIN. [Concomitant]
     Active Substance: CYANOCOBALAMIN
     Indication: ANAEMIA PROPHYLAXIS
     Dosage: 1000 UG, ONCE EVERY 2 MONTHS
     Route: 030
  10. ENALAPRIL/HYDROCHLOROTHIAZIDE [Concomitant]
     Active Substance: ENALAPRIL MALEATE\HYDROCHLOROTHIAZIDE
     Indication: HYPERTENSION
     Dosage: 32.5 MG, 1X/DAY
     Route: 048
     Dates: start: 20170112
  11. BISOPROLOL [Concomitant]
     Active Substance: BISOPROLOL
     Indication: SINUS TACHYCARDIA
     Dosage: 2.5 MG, 2X/DAY
     Route: 048
     Dates: start: 20170413, end: 20170510

REACTIONS (1)
  - Pancytopenia [Fatal]

NARRATIVE: CASE EVENT DATE: 20170507
